FAERS Safety Report 9459686 (Version 1)
Quarter: 2013Q3

REPORT INFORMATION
  Report Type: Report from Study
  Country: GB (occurrence: GB)
  Receive Date: 20130815
  Receipt Date: 20130815
  Transmission Date: 20140515
  Serious: Yes (Life-Threatening, Hospitalization, Other)
  Sender: FDA-Public Use
  Company Number: GB-VERTEX PHARMACEUTICALS INC-2013-008758

PATIENT
  Sex: Male

DRUGS (3)
  1. VX-950 (TELAPREVIR) [Suspect]
     Indication: HEPATITIS C
     Dosage: 750 MG, TID
     Route: 048
  2. RIBAVIRIN [Suspect]
     Indication: HEPATITIS C
     Dosage: 1 DF, BID (CONTINUED UNTIL 38 WEEKS)
     Route: 048
  3. PEG INTERFERON [Suspect]
     Indication: HEPATITIS C
     Dosage: UNK, QW (CONTINUED UNTIL 38 WEEKS)
     Route: 058

REACTIONS (6)
  - Rash [Recovered/Resolved]
  - Depression [Recovered/Resolved]
  - Deafness [Recovered/Resolved]
  - Malaise [Recovered/Resolved]
  - Weight decreased [Recovered/Resolved]
  - Tympanic membrane perforation [Recovered/Resolved]
